FAERS Safety Report 8589715-1 (Version None)
Quarter: 2012Q3

REPORT INFORMATION
  Report Type: 
  Country: None (occurrence: None)
  Receive Date: 20120813
  Receipt Date: 20120809
  Transmission Date: 20120928
  Serious: Yes (Hospitalization, Other)
  Sender: FDA-Public Use
  Company Number: US-PFIZER INC-2011108897

PATIENT
  Age: 40 Year
  Sex: Female

DRUGS (5)
  1. MAVIK [Concomitant]
     Dosage: 2 MG, 1X/DAY
     Route: 048
  2. DILANTIN KAPSEAL [Suspect]
     Indication: CONVULSION
     Dosage: 200 MG, 2X/DAY
     Route: 048
     Dates: start: 20000907, end: 20000920
  3. INSULIN [Concomitant]
     Dosage: UNK
  4. PROCARDIA XL [Concomitant]
     Dosage: 60 MG AT BED TIME
  5. DEPAKOTE [Concomitant]
     Indication: CONVULSION
     Dosage: 500 MG, 3X/DAY

REACTIONS (1)
  - STEVENS-JOHNSON SYNDROME [None]
